FAERS Safety Report 4522446-3 (Version None)
Quarter: 2004Q4

REPORT INFORMATION
  Report Type: 
  Country: None (occurrence: None)
  Receive Date: 20041207
  Receipt Date: 20041201
  Transmission Date: 20050328
  Serious: Yes (Life-Threatening, Hospitalization)
  Sender: FDA-Public Use
  Company Number: 200410649BYL

PATIENT
  Age: 53 Year
  Sex: Male

DRUGS (4)
  1. ASPIRIN [Suspect]
     Indication: THROMBOSIS PROPHYLAXIS
     Dosage: 100 MG, TOTAL DAILY, ORAL
     Route: 048
  2. PLETAL [Suspect]
     Indication: THROMBOSIS PROPHYLAXIS
     Dosage: ORAL
     Route: 048
  3. FAMOTIDINE [Concomitant]
  4. CEFAMEZIN [Concomitant]

REACTIONS (3)
  - CONDITION AGGRAVATED [None]
  - PLATELET COUNT DECREASED [None]
  - PYREXIA [None]
